FAERS Safety Report 13556956 (Version 1)
Quarter: 2017Q2

REPORT INFORMATION
  Report Type: Spontaneous
  Country: US (occurrence: US)
  Receive Date: 20170517
  Receipt Date: 20170517
  Transmission Date: 20170830
  Serious: Yes (Life-Threatening)
  Sender: FDA-Public Use
  Company Number: None

PATIENT
  Age: 49 Year
  Sex: Male
  Weight: 103.5 kg

DRUGS (1)
  1. ULTRAM [Suspect]
     Active Substance: TRAMADOL HYDROCHLORIDE
     Indication: PROCEDURAL PAIN
     Dosage: ?          QUANTITY:15 TABLET(S);?
     Route: 048
     Dates: start: 20170508, end: 20170508

REACTIONS (4)
  - Drug ineffective [None]
  - Infection [None]
  - Therapy cessation [None]
  - Root canal infection [None]

NARRATIVE: CASE EVENT DATE: 20170508
